FAERS Safety Report 4345103-5 (Version None)
Quarter: 2004Q2

REPORT INFORMATION
  Report Type: 
  Country: None (occurrence: None)
  Receive Date: 20040421
  Receipt Date: 20040421
  Transmission Date: 20050107
  Serious: Yes (Hospitalization)
  Sender: FDA-Public Use
  Company Number: None

PATIENT
  Age: 47 Year
  Sex: Female
  Weight: 58.5 kg

DRUGS (3)
  1. HERCEPTIN [Suspect]
     Indication: BREAST CANCER
     Dosage: INTRAVENOUS
     Route: 042
     Dates: start: 20030306, end: 20040306
  2. LEVOTHYROXINE [Concomitant]
  3. AREDIA [Concomitant]

REACTIONS (7)
  - BLOOD THYROID STIMULATING HORMONE INCREASED [None]
  - CHEST DISCOMFORT [None]
  - DYSPNOEA [None]
  - EJECTION FRACTION DECREASED [None]
  - LUNG INFILTRATION [None]
  - PLEURAL EFFUSION [None]
  - SINUS TACHYCARDIA [None]
